FAERS Safety Report 5522151-0 (Version None)
Quarter: 2007Q4

REPORT INFORMATION
  Report Type: 
  Country: None (occurrence: None)
  Receive Date: 20071116
  Receipt Date: 20071101
  Transmission Date: 20080405
  Serious: Yes (Death, Hospitalization)
  Sender: FDA-Public Use
  Company Number: 2007SP22789

PATIENT
  Age: 79 Year
  Sex: Male

DRUGS (1)
  1. EPTIFIBATIDE (S-P) (EPTIFIBATIDE) [Suspect]
     Indication: THROMBOSIS PROPHYLAXIS
     Dosage: IV
     Route: 042
     Dates: start: 20070928, end: 20070928

REACTIONS (2)
  - CEREBRAL HAEMORRHAGE [None]
  - EYE PAIN [None]
